FAERS Safety Report 5513407-6 (Version None)
Quarter: 2007Q4

REPORT INFORMATION
  Report Type: 
  Country: None (occurrence: None)
  Receive Date: 20071112
  Receipt Date: 20070828
  Transmission Date: 20080405
  Serious: Yes (Life-Threatening)
  Sender: FDA-Public Use
  Company Number: CO-PFIZER INC-2007073269

PATIENT
  Sex: Male

DRUGS (2)
  1. CARDURA [Suspect]
     Route: 048
     Dates: start: 20070605, end: 20070607
  2. CIPROFLOXACIN [Concomitant]

REACTIONS (2)
  - ARRHYTHMIA [None]
  - LOSS OF CONSCIOUSNESS [None]
